FAERS Safety Report 7505826-3 (Version None)
Quarter: 2011Q2

REPORT INFORMATION
  Report Type: 
  Country: None (occurrence: None)
  Receive Date: 20110526
  Receipt Date: 20110516
  Transmission Date: 20111010
  Serious: Yes (Hospitalization)
  Sender: FDA-Public Use
  Company Number: ES-ELI_LILLY_AND_COMPANY-ES201105004530

PATIENT
  Sex: Female
  Weight: 56 kg

DRUGS (5)
  1. PLANTABEN [Concomitant]
     Indication: CONSTIPATION
     Dosage: UNK, QD
     Route: 048
  2. CALCIUM CARBONATE [Concomitant]
     Indication: OSTEOPOROSIS
     Dosage: UNK, QD
     Route: 048
  3. FORTEO [Suspect]
     Indication: OSTEOPOROSIS
     Dosage: 20 UG, QD
     Route: 058
     Dates: start: 20100503
  4. ATORVASTATINA [Concomitant]
     Indication: BLOOD CHOLESTEROL INCREASED
     Dosage: 30 MG, QD
     Route: 048
     Dates: start: 20080101
  5. VESICARE [Concomitant]
     Indication: URINARY INCONTINENCE
     Dosage: UNK, QD
     Route: 048

REACTIONS (1)
  - INTESTINAL OBSTRUCTION [None]
